FAERS Safety Report 9314572 (Version 1)
Quarter: 2013Q2

REPORT INFORMATION
  Report Type: Spontaneous
  Country: JP (occurrence: JP)
  Receive Date: 20130529
  Receipt Date: 20130529
  Transmission Date: 20140414
  Serious: Yes (Hospitalization, Other)
  Sender: FDA-Public Use
  Company Number: JP-ASTELLAS-2013JP006181

PATIENT
  Age: 24 Year
  Sex: Female

DRUGS (7)
  1. PROGRAF [Suspect]
     Indication: IMMUNOSUPPRESSANT DRUG THERAPY
     Dosage: 6 MG, UNKNOWN/D
     Route: 048
  2. PROGRAF [Suspect]
     Dosage: 5 MG, UNKNOWN/D
     Route: 048
  3. TEMOCAPRIL HYDROCHLORIDE [Concomitant]
     Indication: HYPERTENSION
     Dosage: 1 MG, UNKNOWN/D
     Route: 048
  4. TEMOCAPRIL HYDROCHLORIDE [Concomitant]
     Dosage: 2 MG, UNKNOWN/D
     Route: 048
  5. METHYLPREDNISOLONE [Concomitant]
     Indication: IMMUNOSUPPRESSANT DRUG THERAPY
     Route: 065
  6. CELLCEPT                           /01275102/ [Concomitant]
     Indication: IMMUNOSUPPRESSANT DRUG THERAPY
     Dosage: 500 MG, UNKNOWN/D
     Route: 048
  7. CANDESARTAN [Concomitant]
     Indication: PROTEIN URINE PRESENT
     Dosage: 2 MG, UNKNOWN/D
     Route: 048

REACTIONS (4)
  - Drug ineffective [Unknown]
  - Transplant rejection [Unknown]
  - Campylobacter gastroenteritis [Unknown]
  - Acute prerenal failure [Unknown]
